FAERS Safety Report 9319660 (Version 1)
Quarter: 2013Q2

REPORT INFORMATION
  Report Type: Spontaneous
  Country: GB (occurrence: None)
  Receive Date: 20130528
  Receipt Date: 20130528
  Transmission Date: 20140414
  Serious: Yes (Other)
  Sender: FDA-Public Use
  Company Number: 1719113

PATIENT
  Age: 16 Year
  Sex: Male

DRUGS (4)
  1. CYTARABINE [Suspect]
     Indication: ACUTE LYMPHOCYTIC LEUKAEMIA
     Dosage: INTRAVENOUS (NOT OTHERWISE SPECIFIED)
     Route: 042
  2. METHOTREXATE [Suspect]
     Indication: ACUTE LYMPHOCYTIC LEUKAEMIA
     Route: 037
  3. CYCLOPHOSPHAMIDE [Suspect]
     Indication: ACUTE LYMPHOCYTIC LEUKAEMIA
     Dosage: INTRAVENOUS (NOT OTHERWISE SPECIFIED)
     Route: 042
  4. (OTHER CHEMOTHERAPEUTICS) [Concomitant]

REACTIONS (9)
  - Monoparesis [None]
  - Paresis [None]
  - Upper motor neurone lesion [None]
  - Facial nerve disorder [None]
  - Vagus nerve disorder [None]
  - Glossopharyngeal nerve disorder [None]
  - Areflexia [None]
  - Vocal cord paralysis [None]
  - Dyspnoea [None]
